FAERS Safety Report 12996007 (Version 1)
Quarter: 2016Q4

REPORT INFORMATION
  Report Type: Spontaneous
  Country: CN (occurrence: CN)
  Receive Date: 20161202
  Receipt Date: 20161202
  Transmission Date: 20170207
  Serious: Yes (Hospitalization, Other)
  Sender: FDA-Public Use
  Company Number: CN-GILEAD-2016-0246123

PATIENT
  Age: 50 Year
  Sex: Male

DRUGS (1)
  1. ADEFOVIR DIPIVOXIL. [Suspect]
     Active Substance: ADEFOVIR DIPIVOXIL
     Indication: CHRONIC HEPATITIS B
     Dosage: UNK
     Route: 065

REACTIONS (26)
  - Gait disturbance [Recovering/Resolving]
  - Movement disorder [Recovering/Resolving]
  - Cyst [Recovering/Resolving]
  - Prostatic calcification [Recovering/Resolving]
  - Protein urine present [Recovering/Resolving]
  - Hypophosphataemia [Recovering/Resolving]
  - Chest discomfort [Recovering/Resolving]
  - Dyspnoea [Recovering/Resolving]
  - Back pain [Recovered/Resolved]
  - Pulmonary calcification [Recovering/Resolving]
  - Discomfort [Recovering/Resolving]
  - Abdominal symptom [Recovering/Resolving]
  - Glucose urine present [Recovering/Resolving]
  - Condition aggravated [Recovering/Resolving]
  - Musculoskeletal chest pain [Recovering/Resolving]
  - Muscle tightness [Recovering/Resolving]
  - Hypermetabolism [Recovering/Resolving]
  - Osteoporosis [Recovering/Resolving]
  - Fanconi syndrome acquired [Recovering/Resolving]
  - Pain [Recovered/Resolved]
  - Pleural thickening [Recovering/Resolving]
  - Lower respiratory tract inflammation [Recovering/Resolving]
  - Osteomalacia [Recovering/Resolving]
  - Emphysema [Recovering/Resolving]
  - Nodule [Recovering/Resolving]
  - Rib fracture [Recovering/Resolving]

NARRATIVE: CASE EVENT DATE: 2013
